FAERS Safety Report 5794374-7 (Version None)
Quarter: 2008Q2

REPORT INFORMATION
  Report Type: 
  Country: None (occurrence: None)
  Receive Date: 20080617
  Receipt Date: 20080605
  Transmission Date: 20081010
  Serious: Yes (Hospitalization)
  Sender: FDA-Public Use
  Company Number: GAM-108-08-US

PATIENT
  Age: 32 Year
  Sex: Female
  Weight: 67 kg

DRUGS (1)
  1. OCTAGAM [Suspect]
     Indication: CHRONIC INFLAMMATORY DEMYELINATING POLYRADICULONEUROPATHY
     Dosage: 35GM/DAY WEEKLY IV
     Route: 042
     Dates: start: 20080318, end: 20080318

REACTIONS (3)
  - CHEST DISCOMFORT [None]
  - HEADACHE [None]
  - URINE OUTPUT DECREASED [None]
